FAERS Safety Report 8226832-X (Version None)
Quarter: 2012Q1

REPORT INFORMATION
  Report Type: 
  Country: None (occurrence: None)
  Receive Date: 20120322
  Receipt Date: 20120314
  Transmission Date: 20120608
  Serious: Yes (Hospitalization)
  Sender: FDA-Public Use
  Company Number: US-BAYER-2011-050840

PATIENT
  Age: 24 Year
  Sex: Female
  Weight: 81.633 kg

DRUGS (4)
  1. AMITRIPTYLINE HCL [Concomitant]
     Dosage: UNK
     Dates: start: 19990101
  2. YAZ [Suspect]
     Indication: PREMENSTRUAL SYNDROME
     Dosage: UNK
     Dates: start: 20050701, end: 20060101
  3. CEFUROXIME [Concomitant]
     Indication: TONSILLITIS
     Dosage: UNK
     Dates: start: 20051118
  4. YASMIN [Suspect]
     Indication: PREMENSTRUAL SYNDROME
     Dosage: UNK
     Dates: start: 20050701, end: 20060101

REACTIONS (12)
  - GALLBLADDER DISORDER [None]
  - INJURY [None]
  - FLATULENCE [None]
  - DEPRESSION [None]
  - DIARRHOEA [None]
  - PAIN [None]
  - DYSPEPSIA [None]
  - CONSTIPATION [None]
  - ABDOMINAL DISTENSION [None]
  - CHOLELITHIASIS [None]
  - CHOLECYSTITIS ACUTE [None]
  - ANXIETY [None]
